FAERS Safety Report 7532321-8 (Version None)
Quarter: 2011Q2

REPORT INFORMATION
  Report Type: 
  Country: None (occurrence: None)
  Receive Date: 20110608
  Receipt Date: 20110601
  Transmission Date: 20111010
  Serious: Yes (Hospitalization)
  Sender: FDA-Public Use
  Company Number: JP-MERCK-1105USA04254

PATIENT
  Age: 58 Year
  Sex: Male

DRUGS (3)
  1. LIPITOR [Concomitant]
     Route: 048
  2. JANUVIA [Suspect]
     Indication: DIABETES MELLITUS
     Route: 048
     Dates: start: 20110401
  3. ACTOS [Concomitant]
     Route: 048

REACTIONS (2)
  - SOMNOLENCE [None]
  - DIABETES MELLITUS INADEQUATE CONTROL [None]
